FAERS Safety Report 7230411-0 (Version None)
Quarter: 2011Q1

REPORT INFORMATION
  Report Type: 
  Country: None (occurrence: None)
  Receive Date: 20110118
  Receipt Date: 20110111
  Transmission Date: 20110831
  Serious: Yes (Other)
  Sender: FDA-Public Use
  Company Number: US-JNJFOC-20110101052

PATIENT
  Age: 52 Year
  Sex: Female

DRUGS (2)
  1. IMODIUM MULTI-SYMPTOM RELIEF [Suspect]
     Indication: ABDOMINAL DISTENSION
     Route: 048
  2. IMODIUM MULTI-SYMPTOM RELIEF [Suspect]
     Indication: DIARRHOEA
     Route: 048

REACTIONS (6)
  - PAIN IN EXTREMITY [None]
  - NECK PAIN [None]
  - HEPATITIS [None]
  - PAINFUL RESPIRATION [None]
  - GASTRITIS [None]
  - CHEST PAIN [None]
